FAERS Safety Report 10360430 (Version 2)
Quarter: 2014Q4

REPORT INFORMATION
  Report Type: Spontaneous
  Country: US (occurrence: US)
  Receive Date: 20140804
  Receipt Date: 20141113
  Transmission Date: 20150528
  Serious: Yes (Other)
  Sender: FDA-Public Use
  Company Number: US-ASTRAZENECA-2014SE54058

PATIENT
  Age: 11 Year
  Sex: Male

DRUGS (2)
  1. PULMICORT FLEXHALER [Suspect]
     Active Substance: BUDESONIDE
     Indication: ASTHMA
     Route: 055
     Dates: end: 20140613
  2. CLARITIN [Concomitant]
     Active Substance: LORATADINE
     Dosage: UNKNOWN UNK

REACTIONS (3)
  - Rash generalised [Recovered/Resolved]
  - Headache [Unknown]
  - Frequent bowel movements [Unknown]
